FAERS Safety Report 8213232-1 (Version None)
Quarter: 2012Q1

REPORT INFORMATION
  Report Type: 
  Country: None (occurrence: None)
  Receive Date: 20120315
  Receipt Date: 20120315
  Transmission Date: 20120608
  Serious: Yes (Other)
  Sender: FDA-Public Use
  Company Number: US-PFIZER INC-2012056448

PATIENT
  Sex: Female
  Weight: 67.12 kg

DRUGS (3)
  1. XANAX [Suspect]
     Indication: CARDIAC DISORDER
  2. XANAX [Suspect]
     Indication: ANXIETY
     Dosage: 1 MG, 3X/DAY
     Route: 048
  3. XANAX [Suspect]
     Indication: STRESS
     Dosage: UNK
     Route: 048

REACTIONS (4)
  - BLOOD CHOLESTEROL INCREASED [None]
  - DIZZINESS [None]
  - NAUSEA [None]
  - DYSGEUSIA [None]
